FAERS Safety Report 17628900 (Version 2)
Quarter: 2020Q2

REPORT INFORMATION
  Report Type: Report from Study
  Country: None (occurrence: SA)
  Receive Date: 20200406
  Receipt Date: 20200407
  Transmission Date: 20200713
  Serious: Yes (Death, Hospitalization)
  Sender: FDA-Public Use
  Company Number: SA-ABBVIE-20K-259-3348964-00

PATIENT
  Age: 97 Year
  Sex: Female

DRUGS (1)
  1. MAVIRET [Suspect]
     Active Substance: GLECAPREVIR\PIBRENTASVIR
     Indication: HEPATITIS C
     Route: 048
     Dates: start: 20200221, end: 20200321

REACTIONS (5)
  - Decreased appetite [Unknown]
  - Bone pain [Unknown]
  - Hepatocellular carcinoma [Unknown]
  - Death [Fatal]
  - Anxiety [Unknown]

NARRATIVE: CASE EVENT DATE: 20200318
